FAERS Safety Report 18500921 (Version 1)
Quarter: 2020Q4

REPORT INFORMATION
  Report Type: Spontaneous
  Country: FR (occurrence: FR)
  Receive Date: 20201113
  Receipt Date: 20201113
  Transmission Date: 20210114
  Serious: Yes (Other)
  Sender: FDA-Public Use
  Company Number: FR-MYLANLABS-2020M1094456

PATIENT
  Age: 32 Year
  Sex: Male

DRUGS (5)
  1. CYPROTERONE [Suspect]
     Active Substance: CYPROTERONE
     Indication: PRIAPISM
     Route: 048
  2. GEMCITABINE. [Suspect]
     Active Substance: GEMCITABINE
     Indication: GLOMUS TUMOUR
     Route: 065
  3. DOCETAXEL. [Suspect]
     Active Substance: DOCETAXEL
     Indication: GLOMUS TUMOUR
     Route: 065
  4. CYCLOPHOSPHAMIDE. [Suspect]
     Active Substance: CYCLOPHOSPHAMIDE
     Indication: GLOMUS TUMOUR
     Route: 048
  5. ETILEFRINE [Suspect]
     Active Substance: ETILEFRINE
     Indication: PRIAPISM
     Route: 048

REACTIONS (3)
  - Erectile dysfunction [Recovering/Resolving]
  - Drug ineffective for unapproved indication [Unknown]
  - Off label use [Unknown]
